FAERS Safety Report 8838283 (Version 2)
Quarter: 2012Q4

REPORT INFORMATION
  Report Type: 
  Country: US (occurrence: US)
  Receive Date: 20121012
  Receipt Date: 20121213
  Transmission Date: 20130627
  Serious: Yes (Hospitalization)
  Sender: FDA-Public Use
  Company Number: US-GLAXOSMITHKLINE-A0776261A

PATIENT
  Sex: Male

DRUGS (1)
  1. AVANDIA [Suspect]
     Indication: DIABETES MELLITUS
     Route: 048
     Dates: start: 2000, end: 2007

REACTIONS (9)
  - Myocardial infarction [Not Recovered/Not Resolved]
  - Transient ischaemic attack [Unknown]
  - Liver injury [Unknown]
  - Muscle disorder [Unknown]
  - Pain in extremity [Unknown]
  - Restless legs syndrome [Unknown]
  - Pain in extremity [Unknown]
  - Amnesia [Unknown]
  - Arrhythmia [Unknown]
